FAERS Safety Report 13246278 (Version 2)
Quarter: 2017Q2

REPORT INFORMATION
  Report Type: Report from Study
  Country: IT (occurrence: IT)
  Receive Date: 20170217
  Receipt Date: 20170407
  Transmission Date: 20170830
  Serious: Yes (Other)
  Sender: FDA-Public Use
  Company Number: IT-BRISTOL-MYERS SQUIBB COMPANY-BMS-2017-012010

PATIENT
  Age: 24 Year
  Sex: Female

DRUGS (1)
  1. NIVOLUMAB [Suspect]
     Active Substance: NIVOLUMAB
     Indication: HODGKIN^S DISEASE
     Dosage: 3 MG/KG, Q2WK
     Route: 065
     Dates: start: 20161010, end: 20170117

REACTIONS (6)
  - Lymphadenopathy [Unknown]
  - Abdominal pain [Unknown]
  - Bone pain [Unknown]
  - Stem cell transplant [Unknown]
  - Pruritus [Unknown]
  - Pyrexia [Unknown]
